FAERS Safety Report 4971960-5 (Version None)
Quarter: 2006Q2

REPORT INFORMATION
  Report Type: 
  Country: None (occurrence: None)
  Receive Date: 20060413
  Receipt Date: 20060403
  Transmission Date: 20061013
  Serious: Yes (Hospitalization)
  Sender: FDA-Public Use
  Company Number: US-MERCK-0604USA00891

PATIENT
  Age: 68 Year
  Sex: Female
  Weight: 77 kg

DRUGS (4)
  1. VIOXX [Suspect]
     Indication: ARTHRITIS
     Route: 048
     Dates: start: 19991201, end: 20020516
  2. FOSAMAX [Concomitant]
     Route: 048
  3. ASPIRIN [Concomitant]
     Route: 065
  4. SKELAXIN [Concomitant]
     Route: 065

REACTIONS (7)
  - BACK PAIN [None]
  - BEREAVEMENT REACTION [None]
  - CAROTID ARTERY STENOSIS [None]
  - EPISTAXIS [None]
  - HYPERTENSION [None]
  - ISCHAEMIC STROKE [None]
  - PHLEBITIS SUPERFICIAL [None]
